FAERS Safety Report 24102169 (Version 1)
Quarter: 2024Q3

REPORT INFORMATION
  Report Type: Spontaneous
  Country: US (occurrence: US)
  Receive Date: 20240717
  Receipt Date: 20240717
  Transmission Date: 20241017
  Serious: Yes (Hospitalization, Other)
  Sender: RANBAXY
  Company Number: US-SUN PHARMACEUTICAL INDUSTRIES LTD-2024R1-456670

PATIENT
  Age: 48 Year
  Sex: Male

DRUGS (11)
  1. MINOCYCLINE [Suspect]
     Active Substance: MINOCYCLINE HYDROCHLORIDE
     Indication: Pyomyositis
     Dosage: UNK
     Route: 065
  2. MINOCYCLINE [Suspect]
     Active Substance: MINOCYCLINE HYDROCHLORIDE
     Indication: Nocardiosis
  3. MEROPENEM [Suspect]
     Active Substance: MEROPENEM
     Indication: Pyomyositis
     Dosage: UNK
     Route: 042
  4. MEROPENEM [Suspect]
     Active Substance: MEROPENEM
     Indication: Nocardiosis
  5. PIPERACILLIN SODIUM\TAZOBACTAM SODIUM [Suspect]
     Active Substance: PIPERACILLIN SODIUM\TAZOBACTAM SODIUM
     Indication: Antibiotic therapy
     Dosage: UNK
     Route: 065
  6. VANCOMYCIN [Suspect]
     Active Substance: VANCOMYCIN
     Indication: Antibiotic therapy
     Dosage: UNK
     Route: 042
  7. LINEZOLID [Suspect]
     Active Substance: LINEZOLID
     Indication: Pyomyositis
     Dosage: UNK
     Route: 048
  8. LINEZOLID [Suspect]
     Active Substance: LINEZOLID
     Indication: Nocardiosis
  9. IMIPENEM [Suspect]
     Active Substance: IMIPENEM
     Indication: Nocardiosis
     Dosage: UNK
     Route: 065
  10. IMIPENEM [Suspect]
     Active Substance: IMIPENEM
     Indication: Nocardiosis
  11. IMIPENEM [Suspect]
     Active Substance: IMIPENEM
     Indication: Pyomyositis

REACTIONS (4)
  - Disease progression [Unknown]
  - Drug resistance [Unknown]
  - Drug intolerance [Unknown]
  - Drug ineffective [Unknown]
